FAERS Safety Report 23835466 (Version 1)
Quarter: 2024Q2

REPORT INFORMATION
  Report Type: Spontaneous
  Country: IR (occurrence: IR)
  Receive Date: 20240509
  Receipt Date: 20240509
  Transmission Date: 20240715
  Serious: No
  Sender: FDA-Public Use
  Company Number: IR-ALKEM LABORATORIES LIMITED-IR-ALKEM-2024-00346

PATIENT
  Age: 14 Year
  Sex: Female

DRUGS (2)
  1. AZATHIOPRINE [Suspect]
     Active Substance: AZATHIOPRINE
     Indication: Pemphigus
     Dosage: UNK
     Route: 065
  2. PREDNISOLONE [Suspect]
     Active Substance: PREDNISOLONE
     Indication: Pemphigus
     Dosage: UNK
     Route: 065

REACTIONS (6)
  - Acne [Unknown]
  - Cushingoid [Unknown]
  - Hirsutism [Unknown]
  - Osteopenia [Unknown]
  - Skin striae [Unknown]
  - Liver function test increased [Unknown]
